FAERS Safety Report 4457962-6 (Version None)
Quarter: 2004Q3

REPORT INFORMATION
  Report Type: 
  Country: None (occurrence: None)
  Receive Date: 20040924
  Receipt Date: 20040906
  Transmission Date: 20050211
  Serious: Yes (Hospitalization)
  Sender: FDA-Public Use
  Company Number: ESWYE020407SEP04

PATIENT
  Sex: Female

DRUGS (2)
  1. ENBREL [Suspect]
     Indication: RHEUMATOID ARTHRITIS
     Dates: end: 20040810
  2. SULINDAC [Suspect]

REACTIONS (2)
  - INTESTINAL HAEMORRHAGE [None]
  - URINARY TRACT INFECTION [None]
